FAERS Safety Report 20849622 (Version 2)
Quarter: 2022Q2

REPORT INFORMATION
  Report Type: Report from Study
  Country: IT (occurrence: IT)
  Receive Date: 20220519
  Receipt Date: 20220603
  Transmission Date: 20220720
  Serious: Yes (Hospitalization)
  Sender: FDA-Public Use
  Company Number: None

PATIENT
  Age: 48 Year
  Sex: Female

DRUGS (3)
  1. ALPRAZOLAM [Suspect]
     Active Substance: ALPRAZOLAM
     Indication: Suicide attempt
     Dosage: UNIT DOSE 50MG,FREQUENCY TIME 1 DAYS,ABUSE / MISUSE
     Route: 065
     Dates: start: 20220316, end: 20220316
  2. VENLAFAXINE [Suspect]
     Active Substance: VENLAFAXINE HYDROCHLORIDE
     Indication: Suicide attempt
     Dosage: UNIT DOSE 1575MG,ABUSE / MISUSE,FREQUENCY TIME 1TOTAL
     Route: 048
     Dates: start: 20220316, end: 20220316
  3. LEVOTHYROXINE SODIUM [Concomitant]
     Active Substance: LEVOTHYROXINE SODIUM
     Dosage: EUTIROX 100 MICROGRAMS TABLETS

REACTIONS (2)
  - Sopor [Not Recovered/Not Resolved]
  - Suicide attempt [Not Recovered/Not Resolved]

NARRATIVE: CASE EVENT DATE: 20220316
